FAERS Safety Report 8487367-2 (Version None)
Quarter: 2012Q2

REPORT INFORMATION
  Report Type: 
  Country: None (occurrence: None)
  Receive Date: 20120628
  Receipt Date: 20120628
  Transmission Date: 20120825
  Serious: Yes (Hospitalization, Disabling)
  Sender: FDA-Public Use
  Company Number: None

PATIENT
  Sex: Female
  Weight: 65.7716 kg

DRUGS (1)
  1. CLARAVIS [Suspect]
     Indication: ACNE
     Dosage: 30 MG TWICE DAILY PO
     Route: 048
     Dates: start: 20111005, end: 20120103

REACTIONS (3)
  - RECTAL HAEMORRHAGE [None]
  - COLITIS ULCERATIVE [None]
  - PANCREATITIS [None]
